FAERS Safety Report 8576784-8 (Version None)
Quarter: 2012Q3

REPORT INFORMATION
  Report Type: 
  Country: None (occurrence: None)
  Receive Date: 20120807
  Receipt Date: 20120801
  Transmission Date: 20120928
  Serious: Yes (Death, Hospitalization, Other)
  Sender: FDA-Public Use
  Company Number: AU-ROCHE-1097336

PATIENT
  Sex: Male

DRUGS (1)
  1. AVASTIN [Suspect]
     Indication: COLORECTAL CANCER METASTATIC
     Dates: end: 20110926

REACTIONS (4)
  - PNEUMONIA [None]
  - DISEASE PROGRESSION [None]
  - DEATH [None]
  - SMALL INTESTINAL OBSTRUCTION [None]
